FAERS Safety Report 6542772-6 (Version None)
Quarter: 2010Q1

REPORT INFORMATION
  Report Type: 
  Country: None (occurrence: None)
  Receive Date: 20100114
  Receipt Date: 20091230
  Transmission Date: 20100710
  Serious: Yes (Hospitalization, Other)
  Sender: FDA-Public Use
  Company Number: JPI-P-009464

PATIENT
  Age: 51 Year
  Sex: Female
  Weight: 94.8018 kg

DRUGS (12)
  1. XYREM [Suspect]
     Indication: FIBROMYALGIA
     Dosage: 3 GM (1.5 GM,2 IN 1 D),ORAL ; ORAL ; 6 GM (3 GM,2 IN 1 D),ORAL
     Route: 048
     Dates: start: 20091031, end: 20090101
  2. XYREM [Suspect]
     Indication: FIBROMYALGIA
     Dosage: 3 GM (1.5 GM,2 IN 1 D),ORAL ; ORAL ; 6 GM (3 GM,2 IN 1 D),ORAL
     Route: 048
     Dates: start: 20090101, end: 20091202
  3. XYREM [Suspect]
     Indication: FIBROMYALGIA
     Dosage: 3 GM (1.5 GM,2 IN 1 D),ORAL ; ORAL ; 6 GM (3 GM,2 IN 1 D),ORAL
     Route: 048
     Dates: start: 20091203
  4. METOPROLOL [Concomitant]
  5. IRBESARTAN [Concomitant]
  6. TOPIRAMATE [Concomitant]
  7. ROPINIROLE [Concomitant]
  8. SERTRALINE HCL [Concomitant]
  9. METFORMIN [Concomitant]
  10. MONTELUKAST SODIUM [Concomitant]
  11. BECLOMETHASONE DIPROPIONATE [Concomitant]
  12. LEVALBUTEROL HCL [Concomitant]

REACTIONS (13)
  - BLOOD PRESSURE SYSTOLIC INCREASED [None]
  - CONSTIPATION [None]
  - COUGH [None]
  - DECREASED APPETITE [None]
  - DEHYDRATION [None]
  - DIARRHOEA [None]
  - HEADACHE [None]
  - HEART RATE INCREASED [None]
  - NAUSEA [None]
  - PALPITATIONS [None]
  - PARAESTHESIA [None]
  - THIRST [None]
  - WEIGHT DECREASED [None]
